FAERS Safety Report 11333238 (Version 1)
Quarter: 2015Q3

REPORT INFORMATION
  Report Type: Spontaneous
  Country: US (occurrence: US)
  Receive Date: 20150803
  Receipt Date: 20150803
  Transmission Date: 20151125
  Serious: No
  Sender: FDA-Public Use
  Company Number: US-ELI_LILLY_AND_COMPANY-US200711005841

PATIENT
  Age: 19 Year
  Sex: Male

DRUGS (1)
  1. ZYPREXA [Suspect]
     Active Substance: OLANZAPINE
     Indication: SCHIZOPHRENIA
     Dosage: 10 MG, UNK
     Dates: start: 200709

REACTIONS (3)
  - Somnolence [Not Recovered/Not Resolved]
  - Weight increased [Not Recovered/Not Resolved]
  - Hunger [Not Recovered/Not Resolved]

NARRATIVE: CASE EVENT DATE: 200710
